FAERS Safety Report 4467479-0 (Version None)
Quarter: 2004Q4

REPORT INFORMATION
  Report Type: 
  Country: None (occurrence: None)
  Receive Date: 20041006
  Receipt Date: 20040930
  Transmission Date: 20050328
  Serious: Yes (Other)
  Sender: FDA-Public Use
  Company Number: ES-MERCK-0410ESP00018

PATIENT
  Age: 60 Year
  Sex: Female

DRUGS (1)
  1. VIOXX [Suspect]
     Indication: FIBROMYALGIA
     Route: 065

REACTIONS (1)
  - TRANSIENT ISCHAEMIC ATTACK [None]
